FAERS Safety Report 4945879-X (Version None)
Quarter: 2006Q1

REPORT INFORMATION
  Report Type: 
  Country: None (occurrence: None)
  Receive Date: 20060316
  Receipt Date: 20060308
  Transmission Date: 20060701
  Serious: Yes (Other)
  Sender: FDA-Public Use
  Company Number: US-ABBOTT-06P-163-0327534-00

PATIENT
  Sex: Female

DRUGS (1)
  1. MERIDIA [Suspect]
     Indication: DRUG USE FOR UNKNOWN INDICATION

REACTIONS (2)
  - DRY EYE [None]
  - EYE LASER SURGERY [None]
